FAERS Safety Report 17467451 (Version 3)
Quarter: 2020Q2

REPORT INFORMATION
  Report Type: Spontaneous
  Country: US (occurrence: US)
  Receive Date: 20200227
  Receipt Date: 20200522
  Transmission Date: 20200713
  Serious: No
  Sender: FDA-Public Use
  Company Number: US-PFIZER INC-2020086417

PATIENT
  Age: 68 Year
  Sex: Male
  Weight: 73.48 kg

DRUGS (2)
  1. LISINOPRIL. [Concomitant]
     Active Substance: LISINOPRIL
     Indication: BLOOD PRESSURE ABNORMAL
     Dosage: 5 MG, 2X/DAY (IIN THE MORNING AND THEN IN THE NIGHT)
  2. SILDENAFIL CITRATE. [Suspect]
     Active Substance: SILDENAFIL CITRATE
     Dosage: 50 MG, (FEW HOURS BEFORE I HAVE SEX)
     Dates: start: 2019

REACTIONS (1)
  - Drug ineffective [Unknown]
